FAERS Safety Report 4963870-4 (Version None)
Quarter: 2006Q1

REPORT INFORMATION
  Report Type: 
  Country: None (occurrence: None)
  Receive Date: 20060330
  Receipt Date: 20060323
  Transmission Date: 20060701
  Serious: Yes (Hospitalization, Other)
  Sender: FDA-Public Use
  Company Number: 2006040993

PATIENT
  Age: 46 Year
  Sex: Female
  Weight: 88.4514 kg

DRUGS (6)
  1. ZOLOFT [Suspect]
     Indication: DEPRESSION
     Dosage: 40 MG, 1 IN 1 D, ORAL
     Route: 048
     Dates: start: 19990101
  2. LIPITOR [Suspect]
     Indication: BLOOD CHOLESTEROL INCREASED
     Dosage: 20 MEQ (1 IN 1 D)
     Dates: start: 20050801
  3. PLAVIX [Suspect]
     Indication: ANTICOAGULANT THERAPY
     Dates: start: 20050801
  4. ALBUTEROL [Concomitant]
  5. TYLENOL W/ CODEINE NO. 3 [Concomitant]
  6. MECLIZINE [Concomitant]

REACTIONS (2)
  - CEREBROVASCULAR ACCIDENT [None]
  - DRUG INEFFECTIVE [None]
